FAERS Safety Report 6771453-9 (Version None)
Quarter: 2010Q2

REPORT INFORMATION
  Report Type: 
  Country: None (occurrence: None)
  Receive Date: 20100616
  Receipt Date: 20100607
  Transmission Date: 20101027
  Serious: Yes (Other)
  Sender: FDA-Public Use
  Company Number: DE-AMGEN-US358088

PATIENT
  Age: 68 Year
  Sex: Female

DRUGS (6)
  1. ENBREL [Suspect]
     Indication: RHEUMATOID ARTHRITIS
     Route: 058
     Dates: start: 20060401, end: 20080201
  2. ENBREL [Suspect]
     Route: 058
     Dates: start: 20080915
  3. ENBREL [Suspect]
     Route: 058
     Dates: start: 20080201, end: 20080501
  4. ARAVA [Suspect]
     Indication: RHEUMATOID ARTHRITIS
     Route: 048
     Dates: start: 20031201, end: 20080101
  5. ARAVA [Suspect]
     Route: 048
     Dates: start: 20080101
  6. DECORTIN-H [Concomitant]
     Indication: RHEUMATOID ARTHRITIS
     Route: 048

REACTIONS (2)
  - ARTHRODESIS [None]
  - IMPAIRED HEALING [None]
